FAERS Safety Report 9402929 (Version 1)
Quarter: 2013Q3

REPORT INFORMATION
  Report Type: Spontaneous
  Country: US (occurrence: US)
  Receive Date: 20130716
  Receipt Date: 20130716
  Transmission Date: 20140515
  Serious: Yes (Other)
  Sender: FDA-Public Use
  Company Number: US-TEVA-418938USA

PATIENT
  Sex: Male

DRUGS (1)
  1. AMIODARONE [Suspect]

REACTIONS (4)
  - Cardiac ablation [Unknown]
  - Optic neuritis [Unknown]
  - Visual impairment [Unknown]
  - Impaired driving ability [Unknown]
